FAERS Safety Report 9121081 (Version 1)
Quarter: 2013Q1

REPORT INFORMATION
  Report Type: Spontaneous
  Country: US (occurrence: US)
  Receive Date: 20130226
  Receipt Date: 20130226
  Transmission Date: 20140127
  Serious: Yes (Other)
  Sender: FDA-Public Use
  Company Number: US-MYLANLABS-2013S1003770

PATIENT
  Age: 70 Year
  Sex: Male

DRUGS (5)
  1. SIMVASTATIN [Suspect]
     Route: 065
  2. LORAZEPAM [Suspect]
     Indication: SLEEP DISORDER
     Route: 065
  3. LORAZEPAM [Suspect]
     Indication: ANXIETY
     Route: 065
  4. ZOLPIDEM [Concomitant]
     Indication: SLEEP DISORDER
     Route: 065
  5. ZOLPIDEM [Concomitant]
     Indication: ANXIETY
     Route: 065

REACTIONS (2)
  - Cognitive disorder [Recovering/Resolving]
  - Agitation [Recovering/Resolving]
